FAERS Safety Report 6614220-9 (Version None)
Quarter: 2010Q1

REPORT INFORMATION
  Report Type: 
  Country: None (occurrence: None)
  Receive Date: 20100304
  Receipt Date: 20100302
  Transmission Date: 20100710
  Serious: Yes (Life-Threatening, Hospitalization, Other)
  Sender: FDA-Public Use
  Company Number: TR-ROXANE LABORATORIES, INC.-2010-RO-00223RO

PATIENT
  Age: 41 Day
  Sex: Male

DRUGS (3)
  1. LIDOCAINE [Suspect]
     Indication: CIRCUMCISION
  2. METHYLENE BLUE [Concomitant]
     Indication: METHAEMOGLOBINAEMIA
     Route: 042
  3. OXYGEN SUPPLEMENTATION [Concomitant]
     Indication: CYANOSIS

REACTIONS (3)
  - CYANOSIS [None]
  - METHAEMOGLOBINAEMIA [None]
  - RESTLESSNESS [None]
